FAERS Safety Report 5222297-0 (Version None)
Quarter: 2007Q1

REPORT INFORMATION
  Report Type: 
  Country: None (occurrence: None)
  Receive Date: 20070129
  Receipt Date: 20061106
  Transmission Date: 20070707
  Serious: No
  Sender: FDA-Public Use
  Company Number: US-GLAXOSMITHKLINE-A0618074A

PATIENT
  Age: 50 Year
  Sex: Female
  Weight: 64.8 kg

DRUGS (11)
  1. MEPRON [Suspect]
     Dosage: 10ML PER DAY
     Route: 048
     Dates: start: 20060816, end: 20060824
  2. BACTRIM [Suspect]
     Route: 065
     Dates: start: 20060101, end: 20060101
  3. FLONASE [Suspect]
     Indication: DRUG USE FOR UNKNOWN INDICATION
     Route: 045
  4. CYTOXAN [Concomitant]
     Indication: VASCULITIS
  5. PREDNISONE [Concomitant]
     Indication: VASCULITIS
  6. AMPICILLIN [Concomitant]
  7. WELLBUTRIN [Concomitant]
  8. FOSAMAX [Concomitant]
  9. CALCIUM [Concomitant]
  10. VITAMIN D [Concomitant]
  11. ASCORBIC ACID [Concomitant]

REACTIONS (6)
  - DRUG HYPERSENSITIVITY [None]
  - HYPERSENSITIVITY [None]
  - INFLUENZA [None]
  - PRURITUS [None]
  - PYREXIA [None]
  - SKIN DISORDER [None]
